FAERS Safety Report 13639461 (Version 1)
Quarter: 2017Q2

REPORT INFORMATION
  Report Type: Spontaneous
  Country: US (occurrence: US)
  Receive Date: 20170609
  Receipt Date: 20170609
  Transmission Date: 20170830
  Serious: Yes (Disabling)
  Sender: FDA-Public Use
  Company Number: US-ROCHE-1044785

PATIENT
  Sex: Female
  Weight: 77.18 kg

DRUGS (1)
  1. KLONOPIN [Suspect]
     Active Substance: CLONAZEPAM
     Indication: MENOPAUSAL SYMPTOMS
     Route: 065

REACTIONS (2)
  - Drug use disorder [Unknown]
  - Anxiety [Not Recovered/Not Resolved]
